FAERS Safety Report 4511097-2 (Version None)
Quarter: 2004Q4

REPORT INFORMATION
  Report Type: 
  Country: None (occurrence: None)
  Receive Date: 20041015
  Receipt Date: 20040109
  Transmission Date: 20050328
  Serious: Yes (Hospitalization, Other)
  Sender: FDA-Public Use
  Company Number: 2004001917

PATIENT
  Age: 25 Year
  Sex: Female
  Weight: 72.5755 kg

DRUGS (2)
  1. NEURONTIN [Suspect]
     Indication: MENTAL DISORDER
     Dosage: ORAL
     Route: 048
     Dates: start: 19990101, end: 20000101
  2. ALPRAZOLAM [Concomitant]

REACTIONS (9)
  - ABNORMAL DREAMS [None]
  - BALANCE DISORDER [None]
  - BIPOLAR DISORDER [None]
  - DEPRESSION [None]
  - MEMORY IMPAIRMENT [None]
  - MENTAL DISORDER [None]
  - OBSESSIVE-COMPULSIVE DISORDER [None]
  - SUICIDAL IDEATION [None]
  - SUICIDE ATTEMPT [None]
